FAERS Safety Report 8283421-9 (Version None)
Quarter: 2012Q2

REPORT INFORMATION
  Report Type: 
  Country: None (occurrence: None)
  Receive Date: 20120413
  Receipt Date: 20120403
  Transmission Date: 20120825
  Serious: Yes (Hospitalization)
  Sender: FDA-Public Use
  Company Number: US-ELI_LILLY_AND_COMPANY-US201203001505

PATIENT
  Sex: Male

DRUGS (1)
  1. HUMALOG [Suspect]
     Indication: DIABETES MELLITUS
     Dosage: UNK

REACTIONS (5)
  - PAIN [None]
  - DRUG DOSE OMISSION [None]
  - SURGERY [None]
  - PROCEDURAL COMPLICATION [None]
  - SPINAL FRACTURE [None]
